FAERS Safety Report 12184123 (Version 1)
Quarter: 2016Q1

REPORT INFORMATION
  Report Type: Report from Study
  Country: US (occurrence: US)
  Receive Date: 20160316
  Receipt Date: 20160316
  Transmission Date: 20160526
  Serious: Yes (Other)
  Sender: FDA-Public Use
  Company Number: US-GILEAD-2016-0203323

PATIENT
  Age: 55 Year
  Sex: Male
  Weight: 100.68 kg

DRUGS (4)
  1. AMBRISENTAN [Suspect]
     Active Substance: AMBRISENTAN
     Indication: PRODUCT USED FOR UNKNOWN INDICATION
     Dosage: 10 MG, QD
     Route: 065
     Dates: start: 20140204
  2. COUMADIN [Suspect]
     Active Substance: WARFARIN SODIUM
     Indication: PRODUCT USED FOR UNKNOWN INDICATION
     Route: 065
  3. XARELTO [Concomitant]
     Active Substance: RIVAROXABAN
  4. OXYGEN. [Concomitant]
     Active Substance: OXYGEN

REACTIONS (5)
  - Chest pain [Unknown]
  - Weight increased [Unknown]
  - Pericardial fibrosis [Unknown]
  - Pericardial effusion [Unknown]
  - Dizziness [Unknown]
